FAERS Safety Report 9812888 (Version 1)
Quarter: 2014Q1

REPORT INFORMATION
  Report Type: Spontaneous
  Country: US (occurrence: None)
  Receive Date: 20140108
  Receipt Date: 20140108
  Transmission Date: 20141002
  Serious: Yes (Other)
  Sender: FDA-Public Use
  Company Number: 2013-US-005119

PATIENT
  Age: 58 Year
  Sex: Female

DRUGS (1)
  1. XYREM [Suspect]
     Indication: SLEEP DISORDER
     Route: 048
     Dates: start: 200410

REACTIONS (5)
  - Tooth infection [None]
  - Tooth fracture [None]
  - Nausea [None]
  - Pain [None]
  - Erythema [None]
